FAERS Safety Report 8096800-X (Version None)
Quarter: 2012Q1

REPORT INFORMATION
  Report Type: 
  Country: None (occurrence: None)
  Receive Date: 20120129
  Receipt Date: 20111202
  Transmission Date: 20120608
  Serious: No
  Sender: FDA-Public Use
  Company Number: US-ABBOTT-11P-163-0880379-00

PATIENT
  Sex: Female
  Weight: 95.34 kg

DRUGS (23)
  1. POTASSIUM [Concomitant]
     Indication: PRODUCT USED FOR UNKNOWN INDICATION
  2. VISTARIL [Concomitant]
     Indication: NAUSEA
  3. METHIMAZOLE [Concomitant]
     Indication: THYROID DISORDER
  4. COMBIVENT [Concomitant]
     Indication: CHRONIC OBSTRUCTIVE PULMONARY DISEASE
  5. AMLODIPINE [Concomitant]
     Indication: HYPERTENSION
  6. XANAX [Concomitant]
     Indication: ANXIETY
  7. IMURAN [Concomitant]
     Indication: CROHN'S DISEASE
  8. HUMIRA [Suspect]
     Indication: CROHN'S DISEASE
     Dates: start: 20111104
  9. MIRTAZAPINE [Concomitant]
     Indication: ANTIDEPRESSANT THERAPY
  10. METOLAZONE [Concomitant]
     Indication: SWELLING
  11. PRAVASTATIN SODIUM [Concomitant]
     Indication: BLOOD CHOLESTEROL INCREASED
  12. REGLAN [Concomitant]
     Indication: NAUSEA
  13. PROTONIX [Concomitant]
     Indication: PRODUCT USED FOR UNKNOWN INDICATION
  14. PREDNISONE TAB [Concomitant]
     Indication: RHEUMATOID ARTHRITIS
  15. PREDNISONE TAB [Concomitant]
     Indication: CROHN'S DISEASE
  16. MELOXICAM [Suspect]
     Indication: ARTHRALGIA
  17. SULFASALAZINE [Concomitant]
     Indication: CROHN'S DISEASE
  18. MIRAPEX [Concomitant]
     Indication: RHEUMATOID ARTHRITIS
  19. REVATION [Concomitant]
     Indication: PULMONARY HYPERTENSION
  20. HUMIRA [Suspect]
     Indication: RHEUMATOID ARTHRITIS
  21. ALBUTEROL [Suspect]
     Indication: CHRONIC OBSTRUCTIVE PULMONARY DISEASE
     Route: 048
  22. LASIX [Concomitant]
     Indication: HYPERTENSION
  23. ADVAIR DISKUS 100/50 [Concomitant]
     Indication: ASTHMA

REACTIONS (2)
  - DRUG INEFFECTIVE [None]
  - ARTHRALGIA [None]
